FAERS Safety Report 25961151 (Version 3)
Quarter: 2025Q4

REPORT INFORMATION
  Report Type: Spontaneous
  Country: PE (occurrence: PE)
  Receive Date: 20251027
  Receipt Date: 20251113
  Transmission Date: 20260117
  Serious: Yes (Hospitalization, Other)
  Sender: CELLTRION
  Company Number: PE-CELLTRION INC.-2025PE038691

PATIENT

DRUGS (3)
  1. YUFLYMA [Suspect]
     Active Substance: ADALIMUMAB-AATY
     Indication: Ankylosing spondylitis
     Dosage: 40 MG ADMINISTERED EVERY TWO WEEKS
     Route: 058
     Dates: start: 20250917, end: 20251001
  2. YUFLYMA [Suspect]
     Active Substance: ADALIMUMAB-AATY
  3. SULFASALAZINE [Concomitant]
     Active Substance: SULFASALAZINE
     Indication: Ankylosing spondylitis
     Dosage: 500 MG EVERY 12 HOURS

REACTIONS (9)
  - Jaundice [Not Recovered/Not Resolved]
  - Epistaxis [Unknown]
  - Platelet count decreased [Unknown]
  - Myalgia [Unknown]
  - Vomiting [Unknown]
  - Nausea [Unknown]
  - Pyrexia [Unknown]
  - Lymphoma [Not Recovered/Not Resolved]
  - Neoplasm [Unknown]

NARRATIVE: CASE EVENT DATE: 20250917
